FAERS Safety Report 9425588 (Version 1)
Quarter: 2013Q3

REPORT INFORMATION
  Report Type: Spontaneous
  Country: US (occurrence: US)
  Receive Date: 20130729
  Receipt Date: 20130729
  Transmission Date: 20140515
  Serious: No
  Sender: FDA-Public Use
  Company Number: US-MYLANLABS-2013S1004971

PATIENT
  Age: 62 Year
  Sex: Male

DRUGS (1)
  1. LEVOTHYROXINE SODIUM TABLETS, USP [Suspect]
     Indication: THYROID DISORDER
     Route: 048

REACTIONS (2)
  - Vomiting [Recovered/Resolved]
  - Dysgeusia [Not Recovered/Not Resolved]
